FAERS Safety Report 11789750 (Version 2)
Quarter: 2015Q4

REPORT INFORMATION
  Report Type: Spontaneous
  Country: JP (occurrence: JP)
  Receive Date: 20151201
  Receipt Date: 20151209
  Transmission Date: 20160305
  Serious: Yes (Other)
  Sender: FDA-Public Use
  Company Number: JP-MYLANLABS-2015M1042148

PATIENT

DRUGS (3)
  1. DOCETAXEL. [Suspect]
     Active Substance: DOCETAXEL
     Indication: OESOPHAGEAL SQUAMOUS CELL CARCINOMA STAGE IV
     Dosage: 70 MG/M2 ON DAY 1.
     Route: 042
  2. FLUOROURACIL. [Suspect]
     Active Substance: FLUOROURACIL
     Indication: OESOPHAGEAL SQUAMOUS CELL CARCINOMA STAGE IV
     Dosage: 750 MG/M2/DAY ON DAYS 1-5.
     Route: 065
  3. CISPLATIN. [Suspect]
     Active Substance: CISPLATIN
     Indication: OESOPHAGEAL SQUAMOUS CELL CARCINOMA STAGE IV
     Dosage: 70 MG/M2 ON DAY 1.
     Route: 065

REACTIONS (3)
  - Febrile neutropenia [Recovered/Resolved]
  - Gastric perforation [Recovered/Resolved]
  - Peritonitis [Recovered/Resolved]
